FAERS Safety Report 5541769-2 (Version None)
Quarter: 2007Q4

REPORT INFORMATION
  Report Type: 
  Country: None (occurrence: None)
  Receive Date: 20071210
  Receipt Date: 20071127
  Transmission Date: 20080405
  Serious: Yes (Other)
  Sender: FDA-Public Use
  Company Number: A0697981A

PATIENT
  Sex: Female

DRUGS (1)
  1. ADVAIR DISKUS 100/50 [Suspect]
     Indication: ASTHMA
     Route: 055

REACTIONS (7)
  - DIZZINESS [None]
  - DYSPNOEA [None]
  - FALL [None]
  - MUSCULAR WEAKNESS [None]
  - PULMONARY CONGESTION [None]
  - SPEECH DISORDER [None]
  - SUFFOCATION FEELING [None]
